FAERS Safety Report 6466169-2 (Version None)
Quarter: 2009Q4

REPORT INFORMATION
  Report Type: 
  Country: None (occurrence: None)
  Receive Date: 20091201
  Receipt Date: 20091201
  Transmission Date: 20100525
  Serious: Yes (Life-Threatening, Hospitalization)
  Sender: FDA-Public Use
  Company Number: None

PATIENT
  Age: 83 Year
  Sex: Female
  Weight: 58.9676 kg

DRUGS (2)
  1. VESICARE [Suspect]
     Indication: URINARY INCONTINENCE
     Dosage: 1 TABLET, LATER 2 TABLETS DAILY PO
     Route: 048
     Dates: start: 20091012, end: 20091112
  2. VESICARE [Suspect]
     Indication: URINARY TRACT INFECTION
     Dosage: 1 TABLET, LATER 2 TABLETS DAILY PO
     Route: 048
     Dates: start: 20091012, end: 20091112

REACTIONS (8)
  - AGITATION [None]
  - CONFUSIONAL STATE [None]
  - DELUSION OF REPLACEMENT [None]
  - DISORIENTATION [None]
  - HOSTILITY [None]
  - PARAMNESIA [None]
  - PARANOIA [None]
  - SPEECH DISORDER [None]
